FAERS Safety Report 8974352 (Version 1)
Quarter: 2012Q4

REPORT INFORMATION
  Report Type: 
  Country: US (occurrence: US)
  Receive Date: 20121219
  Receipt Date: 20121219
  Transmission Date: 20130627
  Serious: No
  Sender: FDA-Public Use
  Company Number: US-AMGEN-USASP2012059022

PATIENT
  Sex: Female

DRUGS (6)
  1. XGEVA [Suspect]
     Indication: METASTASES TO BONE
     Dosage: UNK UNK, q4wk
     Dates: start: 201203
  2. ANTIHYPERTENSIVES [Concomitant]
     Indication: HYPERTENSION
  3. HMG COA REDUCTASE INHIBITORS [Concomitant]
     Indication: HYPERCHOLESTEROLAEMIA
  4. ORAL ANTIDIABETICS [Concomitant]
     Indication: GLUCOSE TOLERANCE IMPAIRED
  5. ANXIOLYTICS [Concomitant]
     Indication: ANXIETY
  6. ANTIDEPRESSANTS [Concomitant]
     Indication: DEPRESSION

REACTIONS (1)
  - Toothache [Not Recovered/Not Resolved]
